FAERS Safety Report 7982487-0 (Version None)
Quarter: 2011Q4

REPORT INFORMATION
  Report Type: 
  Country: None (occurrence: None)
  Receive Date: 20111215
  Receipt Date: 20111207
  Transmission Date: 20120403
  Serious: Yes (Other)
  Sender: FDA-Public Use
  Company Number: CA-ROCHE-1020317

PATIENT
  Sex: Female

DRUGS (2)
  1. CATHFLO ACTIVASE [Suspect]
     Indication: DEVICE OCCLUSION
     Route: 050
     Dates: start: 20101211
  2. FERRLECIT [Suspect]
     Indication: IRON DEFICIENCY
     Dosage: 2MG/2ML
     Dates: start: 20101211

REACTIONS (5)
  - LOSS OF CONSCIOUSNESS [None]
  - CHEST DISCOMFORT [None]
  - LIP SWELLING [None]
  - SWOLLEN TONGUE [None]
  - CYANOSIS [None]
